FAERS Safety Report 18768597 (Version 1)
Quarter: 2021Q1

REPORT INFORMATION
  Report Type: Spontaneous
  Country: NG (occurrence: NG)
  Receive Date: 20210121
  Receipt Date: 20210121
  Transmission Date: 20210419
  Serious: Yes (Other)
  Sender: FDA-Public Use
  Company Number: NG-SUN PHARMACEUTICAL INDUSTRIES LTD-2021R1-276666

PATIENT
  Age: 40 Year
  Sex: Female

DRUGS (1)
  1. MORPHINE [Suspect]
     Active Substance: MORPHINE
     Indication: PRODUCT USED FOR UNKNOWN INDICATION
     Dosage: 1 TABLET, 8 HOURS
     Route: 065

REACTIONS (5)
  - Loss of consciousness [Unknown]
  - Asthenia [Unknown]
  - Toxicity to various agents [Unknown]
  - Aphasia [Unknown]
  - Urine output decreased [Unknown]
